FAERS Safety Report 24278678 (Version 1)
Quarter: 2024Q3

REPORT INFORMATION
  Report Type: Spontaneous
  Country: CA (occurrence: CA)
  Receive Date: 20240903
  Receipt Date: 20240903
  Transmission Date: 20241017
  Serious: Yes (Other)
  Sender: FRESENIUS KABI
  Company Number: CA-FreseniusKabi-FK202413162

PATIENT
  Age: 51 Year
  Sex: Female
  Weight: 91 kg

DRUGS (1)
  1. OXALIPLATIN [Suspect]
     Active Substance: OXALIPLATIN
     Indication: Colon cancer metastatic
     Dosage: FORM OF ADMIN.: SOLUTION INTRAVENOUS
     Route: 042

REACTIONS (3)
  - Pruritus [Recovered/Resolved]
  - Rash [Recovered/Resolved]
  - Urticaria [Recovered/Resolved]
